FAERS Safety Report 9357448 (Version 2)
Quarter: 2013Q2

REPORT INFORMATION
  Report Type: Spontaneous
  Country: US (occurrence: None)
  Receive Date: 20130617
  Receipt Date: 20130627
  Transmission Date: 20140414
  Serious: Yes (Death)
  Sender: FDA-Public Use
  Company Number: UTC-033615

PATIENT
  Age: 60 Year
  Sex: Female
  Weight: 44.1 kg

DRUGS (2)
  1. TYVASO [Suspect]
     Indication: PULMONARY HYPERTENSION
     Route: 055
     Dates: start: 20100326, end: 20130523
  2. TRACLEER (BOSENTAN) [Concomitant]

REACTIONS (2)
  - Pulmonary arterial hypertension [None]
  - Disease progression [None]
